FAERS Safety Report 5600210-1 (Version None)
Quarter: 2008Q1

REPORT INFORMATION
  Report Type: 
  Country: None (occurrence: None)
  Receive Date: 20080117
  Receipt Date: 20080117
  Transmission Date: 20080703
  Serious: No
  Sender: FDA-Public Use
  Company Number: None

PATIENT
  Sex: Male
  Weight: 92.5 kg

DRUGS (2)
  1. PROSCAR [Suspect]
     Indication: PROSTATE CANCER
     Dosage: 5 MG DAILY PO
     Route: 048
     Dates: start: 19991215, end: 20080101
  2. FLUTAMIDE [Suspect]
     Indication: PROSTATE CANCER
     Dosage: 250  TID  PO
     Route: 048
     Dates: start: 19991215, end: 20080101

REACTIONS (1)
  - SQUAMOUS CELL CARCINOMA [None]
